FAERS Safety Report 8984463 (Version 2)
Quarter: 2012Q4

REPORT INFORMATION
  Report Type: 
  Country: DE (occurrence: US)
  Receive Date: 20121226
  Receipt Date: 20121231
  Transmission Date: 20130627
  Serious: Yes (Other)
  Sender: FDA-Public Use
  Company Number: US-BRISTOL-MYERS SQUIBB COMPANY-17231325

PATIENT
  Age: 59 Year
  Sex: Female

DRUGS (15)
  1. METFORMIN HCL [Suspect]
     Indication: DIABETES MELLITUS MANAGEMENT
     Dosage: Increasing 500mg every 3-5 days
2000mg:oral
     Route: 048
  2. LEVOTHYROXINE [Concomitant]
  3. INSULIN DETEMIR [Concomitant]
  4. INSULIN ASPART [Concomitant]
  5. ALENDRONATE [Concomitant]
  6. ASPIRIN [Concomitant]
  7. LISINOPRIL [Concomitant]
  8. SIMVASTATIN [Concomitant]
  9. CYANOCOBALAMIN [Concomitant]
     Route: 048
  10. CITALOPRAM [Concomitant]
  11. PROMETHAZINE [Concomitant]
  12. LORAZEPAM [Concomitant]
  13. VICODIN [Concomitant]
  14. VITAMIN C [Concomitant]
  15. CALCIUM + VITAMIN D [Concomitant]

REACTIONS (3)
  - Pancreatitis chronic [Recovered/Resolved]
  - Blood glucose increased [Unknown]
  - Hypophagia [Unknown]
